FAERS Safety Report 7465860-9 (Version None)
Quarter: 2011Q2

REPORT INFORMATION
  Report Type: 
  Country: None (occurrence: None)
  Receive Date: 20110509
  Receipt Date: 20100420
  Transmission Date: 20111010
  Serious: No
  Sender: FDA-Public Use
  Company Number: US-ALEXION-A201000361

PATIENT
  Sex: Male

DRUGS (8)
  1. ANDRODERM [Concomitant]
     Dosage: UNK
     Route: 061
     Dates: start: 20100305
  2. FERROUS SULFATE TAB [Concomitant]
     Dosage: 325 MG, Q8H
     Route: 048
     Dates: start: 20100305
  3. NSAID'S [Concomitant]
     Indication: MUSCULOSKELETAL DISCOMFORT
  4. FOLIC ACID [Concomitant]
     Dosage: 1 MG, QD
     Route: 048
     Dates: start: 20090128
  5. FISH OIL [Concomitant]
     Dosage: UNK
     Dates: start: 20090128
  6. SOLIRIS [Suspect]
     Indication: PAROXYSMAL NOCTURNAL HAEMOGLOBINURIA
     Dosage: 600 MG, UNK
     Route: 042
     Dates: start: 20100219, end: 20100312
  7. SOLIRIS [Suspect]
     Dosage: 900 MG, UNK
     Route: 042
     Dates: start: 20100319
  8. MULTI-VITAMINS [Concomitant]
     Dosage: UNK
     Dates: start: 20090128

REACTIONS (1)
  - HAEMATOCRIT DECREASED [None]
